FAERS Safety Report 5962372-6 (Version None)
Quarter: 2008Q4

REPORT INFORMATION
  Report Type: 
  Country: None (occurrence: None)
  Receive Date: 20081121
  Receipt Date: 20081111
  Transmission Date: 20090506
  Serious: Yes (Other)
  Sender: FDA-Public Use
  Company Number: CA-GENENTECH-270153

PATIENT
  Sex: Female
  Weight: 65 kg

DRUGS (1)
  1. OMALIZUMAB [Suspect]
     Indication: ASTHMA
     Dosage: 300 UNK, UNK
     Route: 058
     Dates: start: 20080415

REACTIONS (2)
  - ASPERGILLOSIS [None]
  - SECRETION DISCHARGE [None]
